FAERS Safety Report 7669489-9 (Version None)
Quarter: 2011Q3

REPORT INFORMATION
  Report Type: 
  Country: None (occurrence: None)
  Receive Date: 20110808
  Receipt Date: 20110803
  Transmission Date: 20111222
  Serious: Yes (Hospitalization)
  Sender: FDA-Public Use
  Company Number: JP-MERCK-1106USA03190

PATIENT
  Age: 53 Year
  Sex: Female

DRUGS (9)
  1. SYMBICORT [Concomitant]
     Route: 055
     Dates: start: 20110607, end: 20110607
  2. THEO-DUR [Concomitant]
     Route: 048
     Dates: start: 20110602, end: 20110607
  3. SINGULAIR [Suspect]
     Indication: ASTHMA
     Route: 048
     Dates: start: 20110607, end: 20110607
  4. RADEN [Concomitant]
     Route: 048
     Dates: start: 20110602, end: 20110607
  5. ADALAT [Concomitant]
     Route: 048
     Dates: start: 20110128, end: 20110228
  6. ZITHROMAX [Concomitant]
     Route: 048
     Dates: start: 20110607, end: 20110607
  7. CELESTAMINE TAB [Concomitant]
     Route: 048
     Dates: start: 20110607, end: 20110607
  8. DIHYDROCODEINE PHOSPHATE [Concomitant]
     Route: 048
     Dates: start: 20110607, end: 20110607
  9. MUCODYNE [Concomitant]
     Route: 048
     Dates: start: 20110607, end: 20110607

REACTIONS (2)
  - HYPERTENSION [None]
  - HEPATIC FUNCTION ABNORMAL [None]
